FAERS Safety Report 5306544-2 (Version None)
Quarter: 2007Q2

REPORT INFORMATION
  Report Type: 
  Country: None (occurrence: None)
  Receive Date: 20070424
  Receipt Date: 20070330
  Transmission Date: 20071010
  Serious: Yes (Other)
  Sender: FDA-Public Use
  Company Number: US-PFIZER INC-2006041443

PATIENT
  Sex: Male

DRUGS (3)
  1. BEXTRA [Suspect]
     Indication: BACK PAIN
     Route: 048
  2. VOLTAREN [Concomitant]
     Route: 048
  3. PROZAC [Concomitant]
     Route: 048

REACTIONS (4)
  - DERMATITIS [None]
  - PAIN [None]
  - STEVENS-JOHNSON SYNDROME [None]
  - SWELLING [None]
